FAERS Safety Report 4884773-X (Version None)
Quarter: 2005Q4

REPORT INFORMATION
  Report Type: 
  Country: None (occurrence: None)
  Receive Date: 20051201
  Receipt Date: 20050919
  Transmission Date: 20060501
  Serious: No
  Sender: FDA-Public Use
  Company Number: 2005PV002252

PATIENT
  Sex: Female

DRUGS (2)
  1. BYETTA [Suspect]
     Indication: DIABETES MELLITUS
     Dosage: 10 MCG; BID, SC
     Route: 058
  2. AVANDAMET [Concomitant]

REACTIONS (1)
  - BLOOD GLUCOSE INCREASED [None]
